FAERS Safety Report 4656136-3 (Version None)
Quarter: 2005Q2

REPORT INFORMATION
  Report Type: 
  Country: None (occurrence: None)
  Receive Date: 20050509
  Receipt Date: 20030917
  Transmission Date: 20051028
  Serious: Yes (Hospitalization, Disabling)
  Sender: FDA-Public Use
  Company Number: US-ROCHE-347171

PATIENT
  Age: 48 Year
  Sex: Male
  Weight: 75 kg

DRUGS (8)
  1. PEG-INTERFERON ALFA 2A (RO 25-8310) [Suspect]
     Indication: HEPATITIS C VIRUS
     Route: 058
     Dates: start: 20030421, end: 20040315
  2. RIBAVIRIN [Suspect]
     Indication: HEPATITIS C VIRUS
     Route: 048
     Dates: start: 20030421, end: 20040320
  3. PAMELOR [Concomitant]
     Indication: DRUG USE FOR UNKNOWN INDICATION
     Route: 065
  4. LORTAB [Concomitant]
     Indication: DRUG USE FOR UNKNOWN INDICATION
     Dosage: TAKEN DAILY.
     Route: 065
  5. PREVACID [Concomitant]
     Indication: DRUG USE FOR UNKNOWN INDICATION
     Route: 065
  6. MS CONTIN [Concomitant]
  7. LASIX [Concomitant]
  8. CELEBREX [Concomitant]

REACTIONS (32)
  - ANTINUCLEAR ANTIBODY POSITIVE [None]
  - ARTHRALGIA [None]
  - ASTHENIA [None]
  - CALCINOSIS [None]
  - CHEST DISCOMFORT [None]
  - CHEST PAIN [None]
  - DERMATITIS [None]
  - DIZZINESS [None]
  - DRUG INTOLERANCE [None]
  - DYSPNOEA [None]
  - DYSPNOEA EXERTIONAL [None]
  - FATIGUE [None]
  - GAIT DISTURBANCE [None]
  - GAMMOPATHY [None]
  - HEADACHE [None]
  - ICHTHYOSIS [None]
  - IMPAIRED WORK ABILITY [None]
  - JOINT RANGE OF MOTION DECREASED [None]
  - JOINT STIFFNESS [None]
  - LOCALISED OEDEMA [None]
  - MYALGIA [None]
  - NAUSEA [None]
  - PAIN IN EXTREMITY [None]
  - RASH PAPULAR [None]
  - RHEUMATOID FACTOR POSITIVE [None]
  - SCLEROEDEMA [None]
  - SHOULDER PAIN [None]
  - SKIN DISCOLOURATION [None]
  - SKIN DISORDER [None]
  - STREPTOCOCCAL INFECTION [None]
  - TACHYCARDIA [None]
  - TELANGIECTASIA [None]
